FAERS Safety Report 8941212 (Version 2)
Quarter: 2013Q2

REPORT INFORMATION
  Report Type: Report from Study
  Country: DE (occurrence: DE)
  Receive Date: 20121203
  Receipt Date: 20130531
  Transmission Date: 20140414
  Serious: Yes (Other)
  Sender: FDA-Public Use
  Company Number: DE-ROCHE-1160485

PATIENT
  Sex: 0

DRUGS (2)
  1. RIBAVIRIN [Suspect]
     Indication: HEPATITIS E
     Route: 065
  2. RIBAVIRIN [Suspect]
     Route: 065

REACTIONS (2)
  - Anaemia [Unknown]
  - Renal impairment [Unknown]
